FAERS Safety Report 7349321-3 (Version None)
Quarter: 2011Q1

REPORT INFORMATION
  Report Type: 
  Country: None (occurrence: None)
  Receive Date: 20110314
  Receipt Date: 20110307
  Transmission Date: 20110831
  Serious: Yes (Other)
  Sender: FDA-Public Use
  Company Number: US-BAXTER-2011BH005677

PATIENT

DRUGS (6)
  1. TOSITUMOMAB [Suspect]
     Indication: B-CELL LYMPHOMA
     Route: 065
  2. CYCLOPHOSPHAMIDE [Suspect]
     Indication: B-CELL LYMPHOMA
     Route: 048
  3. VINCRISTINE [Suspect]
     Indication: B-CELL LYMPHOMA
     Route: 042
  4. PREDNISONE [Suspect]
     Indication: B-CELL LYMPHOMA
     Route: 048
  5. IODINE-131 [Suspect]
     Indication: B-CELL LYMPHOMA
     Route: 065
  6. IODINE SOLUTION [Concomitant]
     Indication: PROPHYLAXIS
     Route: 065

REACTIONS (1)
  - MYELODYSPLASTIC SYNDROME [None]
